FAERS Safety Report 10101711 (Version 1)
Quarter: 2014Q2

REPORT INFORMATION
  Report Type: Spontaneous
  Country: US (occurrence: US)
  Receive Date: 20140424
  Receipt Date: 20140424
  Transmission Date: 20141212
  Serious: Yes (Other)
  Sender: FDA-Public Use
  Company Number: US-ASTRAZENECA-2014SE26763

PATIENT
  Age: 38 Year
  Sex: Male

DRUGS (4)
  1. SEROQUEL XR [Suspect]
     Indication: BIPOLAR DISORDER
     Route: 048
     Dates: start: 201404
  2. METRONIDAZOLE [Concomitant]
  3. HYDROCORTISONE [Concomitant]
  4. DOXYCYCLINE [Concomitant]

REACTIONS (1)
  - Stevens-Johnson syndrome [Unknown]
